FAERS Safety Report 7390544-5 (Version None)
Quarter: 2011Q2

REPORT INFORMATION
  Report Type: 
  Country: None (occurrence: None)
  Receive Date: 20110403
  Receipt Date: 20090831
  Transmission Date: 20111010
  Serious: Yes (Other)
  Sender: FDA-Public Use
  Company Number: PHHY2009DE67812

PATIENT
  Sex: Female

DRUGS (1)
  1. EXTAVIA [Suspect]
     Indication: MULTIPLE SCLEROSIS
     Dosage: 250 UG, QOD
     Dates: start: 20090720

REACTIONS (10)
  - LOWER LIMB FRACTURE [None]
  - INJECTION SITE NODULE [None]
  - INJECTION SITE INDURATION [None]
  - INFLUENZA LIKE ILLNESS [None]
  - PAIN [None]
  - GAIT DISTURBANCE [None]
  - INJECTION SITE SCAR [None]
  - OEDEMA PERIPHERAL [None]
  - CHILLS [None]
  - INJECTION SITE HAEMATOMA [None]
